FAERS Safety Report 5062635-5 (Version None)
Quarter: 2006Q3

REPORT INFORMATION
  Report Type: 
  Country: None (occurrence: None)
  Receive Date: 20060725
  Receipt Date: 20060725
  Transmission Date: 20061208
  Serious: Yes (Life-Threatening, Hospitalization)
  Sender: FDA-Public Use
  Company Number: None

PATIENT
  Age: 64 Year
  Sex: Female
  Weight: 81.2 kg

DRUGS (2)
  1. LYMPHAZURIN [Suspect]
     Indication: LYMPHADENECTOMY
     Dosage: 5 ML'S X 1 DOSE TISSUE INJECTION
     Dates: start: 20060721
  2. LYMPHAZURIN [Suspect]

REACTIONS (2)
  - ANAPHYLACTIC REACTION [None]
  - CARDIAC OUTPUT DECREASED [None]
